FAERS Safety Report 12585090 (Version 1)
Quarter: 2016Q3

REPORT INFORMATION
  Report Type: Spontaneous
  Country: None (occurrence: US)
  Receive Date: 20160723
  Receipt Date: 20160723
  Transmission Date: 20161109
  Serious: No
  Sender: FDA-Public Use
  Company Number: US-MEDAC PHARMA, INC.-1055440

PATIENT
  Age: 63 Year
  Sex: Female

DRUGS (1)
  1. RASUVO [Suspect]
     Active Substance: METHOTREXATE SODIUM
     Indication: RHEUMATOID ARTHRITIS
     Dates: start: 20160701, end: 20160701

REACTIONS (4)
  - Exposure via direct contact [Recovered/Resolved]
  - Device issue [Recovered/Resolved]
  - Accidental exposure to product [Recovered/Resolved]
  - No adverse event [None]
